FAERS Safety Report 5651919-5 (Version None)
Quarter: 2008Q1

REPORT INFORMATION
  Report Type: 
  Country: None (occurrence: None)
  Receive Date: 20080131
  Receipt Date: 20071112
  Transmission Date: 20080703
  Serious: No
  Sender: FDA-Public Use
  Company Number: US200710007335

PATIENT
  Age: 81 Year
  Sex: Female
  Weight: 72.6 kg

DRUGS (8)
  1. BYETTA [Suspect]
     Indication: TYPE 2 DIABETES MELLITUS
     Dosage: 5 UG, 2/D, SUBCUTANEOUS ; 10 UG, 2/D, SUBCUTANEOUS
     Route: 058
     Dates: start: 20050101, end: 20070901
  2. BYETTA [Suspect]
     Indication: TYPE 2 DIABETES MELLITUS
     Dosage: 5 UG, 2/D, SUBCUTANEOUS ; 10 UG, 2/D, SUBCUTANEOUS
     Route: 058
     Dates: start: 20070920
  3. HYZAAR [Concomitant]
  4. ZEMPLAR [Concomitant]
  5. PROCRIT [Concomitant]
  6. FOLTX (CYANOCOBALAMIN, FOLIC ACID, PYRIDOXINE) [Concomitant]
  7. RENAGEL [Concomitant]
  8. GLYBURIDE [Concomitant]

REACTIONS (9)
  - BACK PAIN [None]
  - BALANCE DISORDER [None]
  - BLOOD GLUCOSE DECREASED [None]
  - BLOOD GLUCOSE INCREASED [None]
  - DECREASED APPETITE [None]
  - FALL [None]
  - INCORRECT DOSE ADMINISTERED [None]
  - MUSCLE SPASMS [None]
  - TREMOR [None]
